FAERS Safety Report 5663867-5 (Version None)
Quarter: 2008Q1

REPORT INFORMATION
  Report Type: 
  Country: None (occurrence: None)
  Receive Date: 20080311
  Receipt Date: 20080305
  Transmission Date: 20080703
  Serious: Yes (Life-Threatening, Other)
  Sender: FDA-Public Use
  Company Number: 2007SP007295

PATIENT
  Age: 80 Year
  Sex: Male
  Weight: 39 kg

DRUGS (10)
  1. TEMODAL [Suspect]
     Indication: GLIOBLASTOMA MULTIFORME
     Dosage: 150 MG/M2; QD; PO, 200 MG/M2; QD; PO, 200 MG/M2; QD; PO
     Route: 048
     Dates: start: 20061004, end: 20061008
  2. TEMODAL [Suspect]
     Indication: GLIOBLASTOMA MULTIFORME
     Dosage: 150 MG/M2; QD; PO, 200 MG/M2; QD; PO, 200 MG/M2; QD; PO
     Route: 048
     Dates: start: 20061124, end: 20061128
  3. TEMODAL [Suspect]
     Indication: GLIOBLASTOMA MULTIFORME
     Dosage: 150 MG/M2; QD; PO, 200 MG/M2; QD; PO, 200 MG/M2; QD; PO
     Route: 048
     Dates: start: 20061222, end: 20061226
  4. BASEN (VOGLIBOSE) [Suspect]
     Indication: HYPERTENSION
     Dosage: 0.2 MG; PO
     Route: 048
     Dates: end: 20061107
  5. NATEGLINIDE [Suspect]
     Indication: HYPERTENSION
     Dosage: 30 MG; PO
     Route: 048
     Dates: end: 20061107
  6. PREDNISONE [Concomitant]
  7. PARULEON [Concomitant]
  8. MAGNESIUM OXIDE [Concomitant]
  9. DEPAS [Concomitant]
  10. NAUZELIN [Concomitant]

REACTIONS (9)
  - ASPIRATION [None]
  - DISSEMINATED INTRAVASCULAR COAGULATION [None]
  - GASTRIC ULCER [None]
  - GUTTATE PSORIASIS [None]
  - HEPATIC FUNCTION ABNORMAL [None]
  - NEUTROPHIL COUNT INCREASED [None]
  - PLATELET COUNT DECREASED [None]
  - PNEUMONIA [None]
  - URINARY RETENTION [None]
